APPROVED DRUG PRODUCT: QINLOCK
Active Ingredient: RIPRETINIB
Strength: 50MG
Dosage Form/Route: TABLET;ORAL
Application: N213973 | Product #001
Applicant: DECIPHERA PHARMACEUTICALS LLC
Approved: May 15, 2020 | RLD: Yes | RS: Yes | Type: RX

PATENTS:
Patent 11426390 | Expires: Aug 12, 2040
Patent 12295944 | Expires: Aug 12, 2040
Patent 11433056 | Expires: Aug 12, 2040
Patent 12023328 | Expires: Dec 30, 2040
Patent 12023327 | Expires: Aug 12, 2040
Patent 12023326 | Expires: Aug 12, 2040
Patent 12023325 | Expires: Aug 12, 2040
Patent 11529336 | Expires: Aug 12, 2040
Patent 11534432 | Expires: Aug 12, 2040
Patent 11969415 | Expires: Dec 30, 2040
Patent 11969414 | Expires: Feb 8, 2041
Patent 12318373 | Expires: Aug 12, 2040
Patent 11779572 | Expires: Oct 6, 2042
Patent 11813251 | Expires: Aug 12, 2040
Patent 11344536 | Expires: Aug 12, 2040
Patent 11266635 | Expires: Aug 12, 2040
Patent 11576904 | Expires: Aug 12, 2040
Patent 12064422 | Expires: Dec 30, 2040
Patent 10966966 | Expires: Aug 12, 2040
Patent 11801237 | Expires: Dec 30, 2040
Patent RE48731 | Expires: Jun 7, 2032
Patent 12059411 | Expires: Aug 12, 2040
Patent 12059410 | Expires: Aug 12, 2040
Patent 11918564 | Expires: Dec 30, 2040
Patent 12213967 | Expires: Dec 30, 2040
Patent 11896585 | Expires: Dec 30, 2040
Patent 12318374 | Expires: Dec 30, 2040
Patent 11576903 | Expires: Dec 30, 2040
Patent 11903933 | Expires: Dec 30, 2040
Patent 12226406 | Expires: Dec 30, 2040
Patent 11844788 | Expires: Dec 30, 2040
Patent 8188113 | Expires: Jul 27, 2030
Patent 8461179 | Expires: May 15, 2034
Patent 11850241 | Expires: Dec 30, 2040
Patent 11395818 | Expires: Dec 30, 2040
Patent 11612591 | Expires: Dec 30, 2040
Patent 11185535 | Expires: Dec 30, 2040
Patent 11793795 | Expires: Dec 30, 2040
Patent 12213968 | Expires: Dec 30, 2040
Patent 11850240 | Expires: Dec 30, 2040
Patent 11911370 | Expires: Dec 30, 2040

EXCLUSIVITY:
Code: ODE-298 | Date: May 15, 2027